FAERS Safety Report 8791945 (Version 1)
Quarter: 2012Q4

REPORT INFORMATION
  Report Type: 
  Country: US (occurrence: US)
  Receive Date: 20120918
  Receipt Date: 20120918
  Transmission Date: 20130627
  Serious: Yes (Other)
  Sender: FDA-Public Use
  Company Number: US-PFIZER INC-2012228526

PATIENT
  Age: 69 Year
  Sex: Female
  Weight: 96 kg

DRUGS (4)
  1. DEPO-MEDROL [Suspect]
     Dosage: UNK
  2. LIDOCAINE HCL [Suspect]
     Dosage: UNK
  3. ACETYLSALICYLIC ACID [Suspect]
     Dosage: UNK
  4. FENTANYL [Suspect]
     Dosage: UNK

REACTIONS (4)
  - Hypersensitivity [Unknown]
  - Dyspnoea [Unknown]
  - Rash [Unknown]
  - Pruritus [Unknown]
